FAERS Safety Report 9875882 (Version 1)
Quarter: 2014Q1

REPORT INFORMATION
  Report Type: Spontaneous
  Country: US (occurrence: None)
  Receive Date: 20140205
  Receipt Date: 20140205
  Transmission Date: 20141002
  Serious: Yes (Life-Threatening)
  Sender: FDA-Public Use
  Company Number: None

PATIENT
  Age: 63 Year
  Sex: Male
  Weight: 79.83 kg

DRUGS (1)
  1. VISIPAQUE [Suspect]
     Indication: VENOGRAM
     Route: 042
     Dates: start: 20140128, end: 20140128

REACTIONS (5)
  - Hypersensitivity [None]
  - Urticaria [None]
  - Hypersensitivity [None]
  - Dyspnoea [None]
  - Dysphonia [None]
